FAERS Safety Report 23570588 (Version 1)
Quarter: 2024Q1

REPORT INFORMATION
  Report Type: Spontaneous
  Country: CA (occurrence: CA)
  Receive Date: 20240227
  Receipt Date: 20240227
  Transmission Date: 20240410
  Serious: Yes (Death, Other)
  Sender: FDA-Public Use
  Company Number: CA-002147023-NVSC2024CA035535

PATIENT

DRUGS (242)
  1. DICLOFENAC SODIUM [Suspect]
     Active Substance: DICLOFENAC\DICLOFENAC SODIUM
     Indication: Foetal exposure during pregnancy
     Dosage: UNK (MATERNAL EXPOSURE DURING PREGNANCY: UNK)
     Route: 065
  2. ACETAMINOPHEN [Suspect]
     Active Substance: ACETAMINOPHEN
     Indication: Foetal exposure during pregnancy
     Dosage: UNK (MATERNAL EXPOSURE DURING PREGNANCY: UNK)
     Route: 065
  3. CETIRIZINE HYDROCHLORIDE [Suspect]
     Active Substance: CETIRIZINE HYDROCHLORIDE
     Indication: Foetal exposure during pregnancy
     Dosage: 20 MG, QD (MATERNAL EXPOSURE DURING PREGNANCY: 20 MG, QD (UNKNOWN FORMULATION))
     Route: 065
  4. CETIRIZINE HYDROCHLORIDE [Suspect]
     Active Substance: CETIRIZINE HYDROCHLORIDE
     Dosage: 20 MG, QD (MATERNAL EXPOSURE DURING PREGNANCY: 20 MG, QD)
     Route: 065
  5. CETIRIZINE HYDROCHLORIDE [Suspect]
     Active Substance: CETIRIZINE HYDROCHLORIDE
     Dosage: 20 MG, QD (MATERNAL EXPOSURE DURING PREGNANCY: 20 MG, QD)
     Route: 065
  6. CETIRIZINE HYDROCHLORIDE [Suspect]
     Active Substance: CETIRIZINE HYDROCHLORIDE
     Dosage: 20 MG (MATERNAL EXPOSURE DURING PREGNANCY: 20 MG)
     Route: 065
  7. CETIRIZINE HYDROCHLORIDE [Suspect]
     Active Substance: CETIRIZINE HYDROCHLORIDE
     Dosage: 20 MG, QD (MATERNAL EXPOSURE DURING PREGNANCY: 20 MG, QD (UNKNOWN FORMULATION)
     Route: 065
  8. CETIRIZINE HYDROCHLORIDE [Suspect]
     Active Substance: CETIRIZINE HYDROCHLORIDE
     Dosage: 20 MG, QD (MATERNAL EXPOSURE DURING PREGNANCY: 20 MG, QD)
     Route: 065
  9. CETIRIZINE HYDROCHLORIDE [Suspect]
     Active Substance: CETIRIZINE HYDROCHLORIDE
     Dosage: 20 MG, QD (MATERNAL EXPOSURE DURING PREGNANCY: 20 MG, QD)
     Route: 065
  10. CETIRIZINE HYDROCHLORIDE [Suspect]
     Active Substance: CETIRIZINE HYDROCHLORIDE
     Dosage: 20 MG, QD (MATERNAL EXPOSURE DURING PREGNANCY: 20 MG, QD)
     Route: 065
  11. DIPHENHYDRAMINE [Suspect]
     Active Substance: DIPHENHYDRAMINE
     Indication: Foetal exposure during pregnancy
     Dosage: 75 MG (MATERNAL EXPOSURE DURING PREGNANCY: 75 MG)
     Route: 065
  12. DIPHENHYDRAMINE [Suspect]
     Active Substance: DIPHENHYDRAMINE
     Dosage: 75 MG, QD (MATERNAL EXPOSURE DURING PREGNANCY: 75 MG, QD)
     Route: 065
  13. DIPHENHYDRAMINE [Suspect]
     Active Substance: DIPHENHYDRAMINE
     Dosage: 75 MG (MATERNAL EXPOSURE DURING PREGNANCY: 75 MG))
     Route: 065
  14. DIPHENHYDRAMINE [Suspect]
     Active Substance: DIPHENHYDRAMINE
     Dosage: 75 MG, QD (MATERNAL EXPOSURE DURING PREGNANCY: 75 MG, QD)
     Route: 065
  15. DIPHENHYDRAMINE [Suspect]
     Active Substance: DIPHENHYDRAMINE
     Dosage: UNK (MATERNAL EXPOSURE DURING PREGNANCY: UNK)
     Route: 065
  16. DIPHENHYDRAMINE [Suspect]
     Active Substance: DIPHENHYDRAMINE
     Dosage: 75 MG, QD (MATERNAL EXPOSURE DURING PREGNANCY: 75 MG, QD)
     Route: 065
  17. PANTOPRAZOLE [Suspect]
     Active Substance: PANTOPRAZOLE
     Indication: Foetal exposure during pregnancy
     Dosage: UNK (MATERNAL EXPOSURE DURING PREGNANCY: UNK)
     Route: 065
  18. SENOKOT [Suspect]
     Active Substance: SENNOSIDES
     Indication: Foetal exposure during pregnancy
     Dosage: UNK (MATERNAL EXPOSURE DURING PREGNANCY: UNK)
     Route: 065
  19. SENOKOT [Suspect]
     Active Substance: SENNOSIDES
     Dosage: UNK (MATERNAL EXPOSURE DURING PREGNANCY: UNK)
     Route: 065
  20. DIPHENHYDRAMINE HYDROCHLORIDE [Suspect]
     Active Substance: DIPHENHYDRAMINE HYDROCHLORIDE
     Indication: Foetal exposure during pregnancy
     Dosage: 75 MG, QD (MATERNAL EXPOSURE DURING PREGNANCY: 75 MG, QD (UNKNOWN FORMULATION))
     Route: 065
  21. DIPHENHYDRAMINE HYDROCHLORIDE [Suspect]
     Active Substance: DIPHENHYDRAMINE HYDROCHLORIDE
     Dosage: 75 MG, QD (MATERNAL EXPOSURE DURING PREGNANCY: 75 MG, QD)
     Route: 065
  22. DIPHENHYDRAMINE HYDROCHLORIDE [Suspect]
     Active Substance: DIPHENHYDRAMINE HYDROCHLORIDE
     Dosage: 75 MG, QD (MATERNAL EXPOSURE DURING PREGNANCY: 75 MG, QD)
     Route: 065
  23. DIPHENHYDRAMINE HYDROCHLORIDE [Suspect]
     Active Substance: DIPHENHYDRAMINE HYDROCHLORIDE
     Dosage: 75 MG (MATERNAL EXPOSURE DURING PREGNANCY: 75 MG)
     Route: 065
  24. ASCORBIC ACID [Suspect]
     Active Substance: ASCORBIC ACID
     Indication: Foetal exposure during pregnancy
     Dosage: UNK (MATERNAL EXPOSURE DURING PREGNANCY: UNK)
     Route: 065
  25. ASCORBIC ACID [Suspect]
     Active Substance: ASCORBIC ACID
     Dosage: UNK (MATERNAL EXPOSURE DURING PREGNANCY: UNK)
     Route: 065
  26. ASCORBIC ACID [Suspect]
     Active Substance: ASCORBIC ACID
     Dosage: UNK (MATERNAL EXPOSURE DURING PREGNANCY: UNK)
     Route: 065
  27. ASCORBIC ACID [Suspect]
     Active Substance: ASCORBIC ACID
     Indication: Foetal exposure during pregnancy
     Dosage: UNK (MATERNAL EXPOSURE DURING PREGNANCY: UNK)
     Route: 065
  28. ASCORBIC ACID [Suspect]
     Active Substance: ASCORBIC ACID
     Dosage: UNK (MATERNAL EXPOSURE DURING PREGNANCY: UNK)
     Route: 065
  29. ABACAVIR SULFATE [Suspect]
     Active Substance: ABACAVIR SULFATE
     Indication: Foetal exposure during pregnancy
     Dosage: UNK (MATERNAL EXPOSURE DURING PREGNANCY: UNK)
     Route: 065
  30. ABACAVIR\LAMIVUDINE [Suspect]
     Active Substance: ABACAVIR\LAMIVUDINE
     Indication: Foetal exposure during pregnancy
     Dosage: UNK (MATERNAL EXPOSURE DURING PREGNANCY: UNK)
     Route: 065
  31. ACTEMRA [Suspect]
     Active Substance: TOCILIZUMAB
     Indication: Foetal exposure during pregnancy
     Dosage: 500 MG, QD (MATERNAL EXPOSURE DURING PREGNANCY: 500 MG, QD)
     Route: 064
  32. ACTEMRA [Suspect]
     Active Substance: TOCILIZUMAB
     Dosage: 500 MG (MATERNAL EXPOSURE DURING PREGNANCY: 500 MG)
     Route: 064
  33. ACTEMRA [Suspect]
     Active Substance: TOCILIZUMAB
     Dosage: 1000 MG, QD (MATERNAL EXPOSURE DURING PREGNANCY: 500 MG, BID)
     Route: 064
  34. ACTEMRA [Suspect]
     Active Substance: TOCILIZUMAB
     Dosage: 500 MG, QD (MATERNAL EXPOSURE DURING PREGNANCY: 500 MG, QD)
     Route: 064
  35. ACTEMRA [Suspect]
     Active Substance: TOCILIZUMAB
     Dosage: 1000 MG, QD (MATERNAL EXPOSURE DURING PREGNANCY: 500 MG, BID)
     Route: 064
  36. ACTEMRA [Suspect]
     Active Substance: TOCILIZUMAB
     Dosage: 1000 MG, QD (MATERNAL EXPOSURE DURING PREGNANCY: 500 MG, BID)
     Route: 064
  37. ACTEMRA [Suspect]
     Active Substance: TOCILIZUMAB
     Dosage: 1000 MG, QD (MATERNAL EXPOSURE DURING PREGNANCY: 500 MG, BID)
     Route: 064
  38. ACTEMRA [Suspect]
     Active Substance: TOCILIZUMAB
     Dosage: 1000 MG, QD (MATERNAL EXPOSURE DURING PREGNANCY: 500 MG, BID)
     Route: 064
  39. ACTEMRA [Suspect]
     Active Substance: TOCILIZUMAB
     Dosage: 1000 MG (MATERNAL EXPOSURE DURING PREGNANCY: 1000 MG)
     Route: 064
  40. ACTEMRA [Suspect]
     Active Substance: TOCILIZUMAB
     Dosage: 500 MG, QOD (MATERNAL EXPOSURE DURING PREGNANCY:500MG(1 EVERY 2DAYS)
     Route: 064
  41. ACTEMRA [Suspect]
     Active Substance: TOCILIZUMAB
     Dosage: 100 MG, QD (MATERNAL EXPOSURE DURING PREGNANCY: 100 MG, QD (UNKNOWN FORMULATION))
     Route: 064
  42. ACTEMRA [Suspect]
     Active Substance: TOCILIZUMAB
     Dosage: UNK (MATERNAL EXPOSURE DURING PREGNANCY: UNK)
     Route: 065
  43. ADVAIR HFA [Suspect]
     Active Substance: FLUTICASONE PROPIONATE\SALMETEROL XINAFOATE
     Indication: Foetal exposure during pregnancy
     Dosage: 500 MG, QD (MATERNAL EXPOSURE DURING PREGNANCY: 500 MG, QD)
     Route: 065
  44. ADVAIR HFA [Suspect]
     Active Substance: FLUTICASONE PROPIONATE\SALMETEROL XINAFOATE
     Dosage: 1000 MG, QD (MATERNAL EXPOSURE DURING PREGNANCY: 500 MG, BID)
     Route: 065
  45. ADVAIR HFA [Suspect]
     Active Substance: FLUTICASONE PROPIONATE\SALMETEROL XINAFOATE
     Dosage: 1000 MG, QD (MATERNAL EXPOSURE DURING PREGNANCY: 500 MG, BID)
     Route: 065
  46. ADVAIR HFA [Suspect]
     Active Substance: FLUTICASONE PROPIONATE\SALMETEROL XINAFOATE
     Dosage: 500 MG, QD (MATERNAL EXPOSURE DURING PREGNANCY: 500 MG, QD)
     Route: 065
  47. ADVAIR HFA [Suspect]
     Active Substance: FLUTICASONE PROPIONATE\SALMETEROL XINAFOATE
     Dosage: 1000 MG, QD (MATERNAL EXPOSURE DURING PREGNANCY: 500 MG, BID)
     Route: 065
  48. ADVAIR HFA [Suspect]
     Active Substance: FLUTICASONE PROPIONATE\SALMETEROL XINAFOATE
     Dosage: 1000 MG, QD (MATERNAL EXPOSURE DURING PREGNANCY: 500 MG, BID)
     Route: 065
  49. ADVAIR HFA [Suspect]
     Active Substance: FLUTICASONE PROPIONATE\SALMETEROL XINAFOATE
     Dosage: 500 MG (MATERNAL EXPOSURE DURING PREGNANCY: 500 MG)
     Route: 065
  50. ADVAIR HFA [Suspect]
     Active Substance: FLUTICASONE PROPIONATE\SALMETEROL XINAFOATE
     Dosage: 500 MG (MATERNAL EXPOSURE DURING PREGNANCY: 500 MG)
     Route: 065
  51. ADVAIR HFA [Suspect]
     Active Substance: FLUTICASONE PROPIONATE\SALMETEROL XINAFOATE
     Dosage: 500 MG (MATERNAL EXPOSURE DURING PREGNANCY: 500 MG)
     Route: 065
  52. ADVAIR HFA [Suspect]
     Active Substance: FLUTICASONE PROPIONATE\SALMETEROL XINAFOATE
     Dosage: 500 MG, QD (MATERNAL EXPOSURE DURING PREGNANCY: 500 MG, QD)
     Route: 065
  53. ADVAIR HFA [Suspect]
     Active Substance: FLUTICASONE PROPIONATE\SALMETEROL XINAFOATE
     Dosage: 500 MG, QD (MATERNAL EXPOSURE DURING PREGNANCY: 500 MG, QD)
     Route: 065
  54. ADVAIR HFA [Suspect]
     Active Substance: FLUTICASONE PROPIONATE\SALMETEROL XINAFOATE
     Dosage: 1000 MG, QD (MATERNAL EXPOSURE DURING PREGNANCY: 500 MG, BID)
     Route: 065
  55. ADVAIR HFA [Suspect]
     Active Substance: FLUTICASONE PROPIONATE\SALMETEROL XINAFOATE
     Dosage: 500 MG (MATERNAL EXPOSURE DURING PREGNANCY: 500 MG)
     Route: 065
  56. ADVAIR HFA [Suspect]
     Active Substance: FLUTICASONE PROPIONATE\SALMETEROL XINAFOATE
     Dosage: 500 MG (MATERNAL EXPOSURE DURING PREGNANCY: 500 MG)
     Route: 065
  57. ADVAIR HFA [Suspect]
     Active Substance: FLUTICASONE PROPIONATE\SALMETEROL XINAFOATE
     Dosage: 1000 MG, QD (MATERNAL EXPOSURE DURING PREGNANCY: 500 MG, BID)
     Route: 065
  58. ALBUTEROL SULFATE [Suspect]
     Active Substance: ALBUTEROL SULFATE
     Indication: Foetal exposure during pregnancy
     Dosage: UNK (MATERNAL EXPOSURE DURING PREGNANCY: UNK)
     Route: 065
  59. ALBUTEROL SULFATE [Suspect]
     Active Substance: ALBUTEROL SULFATE
     Dosage: UNK (MATERNAL EXPOSURE DURING PREGNANCY: UNK)
     Route: 065
  60. ALBUTEROL SULFATE [Suspect]
     Active Substance: ALBUTEROL SULFATE
     Dosage: UNK (MATERNAL EXPOSURE DURING PREGNANCY: UNK)
     Route: 065
  61. ALBUTEROL SULFATE [Suspect]
     Active Substance: ALBUTEROL SULFATE
     Dosage: UNK (MATERNAL EXPOSURE DURING PREGNANCY: UNK)
     Route: 065
  62. ALBUTEROL SULFATE [Suspect]
     Active Substance: ALBUTEROL SULFATE
     Dosage: UNK (MATERNAL EXPOSURE DURING PREGNANCY: UNK)
     Route: 065
  63. ALBUTEROL SULFATE [Suspect]
     Active Substance: ALBUTEROL SULFATE
     Dosage: UNK (MATERNAL EXPOSURE DURING PREGNANCY: UNK (FORMULATION: METERED-DOSE (AEROSOL))
     Route: 065
  64. ALBUTEROL [Suspect]
     Active Substance: ALBUTEROL
     Indication: Foetal exposure during pregnancy
     Dosage: UNK (MATERNAL EXPOSURE DURING PREGNANCY: UNK)
     Route: 065
  65. ALBUTEROL [Suspect]
     Active Substance: ALBUTEROL
     Dosage: UNK (MATERNAL EXPOSURE DURING PREGNANCY: UNK)
     Route: 065
  66. PANTOPRAZOLE SODIUM ANHYDROUS [Suspect]
     Active Substance: PANTOPRAZOLE SODIUM ANHYDROUS
     Indication: Foetal exposure during pregnancy
     Dosage: UNK (MATERNAL EXPOSURE DURING PREGNANCY: UNK)
     Route: 065
  67. NORTRIPTYLINE [Suspect]
     Active Substance: NORTRIPTYLINE
     Indication: Foetal exposure during pregnancy
     Dosage: 10 MG (MATERNAL EXPOSURE DURING PREGNANCY: 10 MG)
     Route: 065
  68. NORTRIPTYLINE [Suspect]
     Active Substance: NORTRIPTYLINE
     Dosage: 10 MG (MATERNAL EXPOSURE DURING PREGNANCY: 10 MG)
     Route: 065
  69. NORTRIPTYLINE [Suspect]
     Active Substance: NORTRIPTYLINE
     Dosage: 10 MG (MATERNAL EXPOSURE DURING PREGNANCY: 10 MG)
     Route: 065
  70. BUPROPION [Suspect]
     Active Substance: BUPROPION
     Indication: Foetal exposure during pregnancy
     Dosage: UNK (MATERNAL EXPOSURE DURING PREGNANCY: UNK)
     Route: 065
  71. BUPROPION HYDROCHLORIDE [Suspect]
     Active Substance: BUPROPION HYDROCHLORIDE
     Indication: Foetal exposure during pregnancy
     Dosage: UNK (MATERNAL EXPOSURE DURING PREGNANCY: UNK (FORMULATION: UNKNOWN)
     Route: 065
  72. BUPROPION HYDROCHLORIDE [Suspect]
     Active Substance: BUPROPION HYDROCHLORIDE
     Dosage: 150 MG (MATERNAL EXPOSURE DURING PREGNANCY: 150 MG)
     Route: 065
  73. BUPROPION HYDROCHLORIDE [Suspect]
     Active Substance: BUPROPION HYDROCHLORIDE
     Dosage: 150 MG (MATERNAL EXPOSURE DURING PREGNANCY: 150 MG)
     Route: 065
  74. BUPROPION HYDROCHLORIDE [Suspect]
     Active Substance: BUPROPION HYDROCHLORIDE
     Dosage: 150 MG (MATERNAL EXPOSURE DURING PREGNANCY: 150 MG)
     Route: 065
  75. BUPROPION HYDROCHLORIDE [Suspect]
     Active Substance: BUPROPION HYDROCHLORIDE
     Dosage: UNK (MATERNAL EXPOSURE DURING PREGNANCY: UNK (FORMULATION: UNKNOWN)
     Route: 065
  76. CHLORMEZANONE [Suspect]
     Active Substance: CHLORMEZANONE
     Indication: Foetal exposure during pregnancy
     Dosage: UNK (MATERNAL EXPOSURE DURING PREGNANCY: UNK)
     Route: 065
  77. CHLORMEZANONE [Suspect]
     Active Substance: CHLORMEZANONE
     Dosage: UNK (MATERNAL EXPOSURE DURING PREGNANCY: UNK (UNKNOWN FORMULATION)
     Route: 065
  78. CITALOPRAM HYDROBROMIDE [Suspect]
     Active Substance: CITALOPRAM HYDROBROMIDE
     Indication: Foetal exposure during pregnancy
     Dosage: UNK (MATERNAL EXPOSURE DURING PREGNANCY: UNK)
     Route: 065
  79. CITALOPRAM HYDROBROMIDE [Suspect]
     Active Substance: CITALOPRAM HYDROBROMIDE
     Dosage: UNK (MATERNAL EXPOSURE DURING PREGNANCY: UNK)
     Route: 065
  80. CITALOPRAM HYDROBROMIDE [Suspect]
     Active Substance: CITALOPRAM HYDROBROMIDE
     Dosage: UNK (MATERNAL EXPOSURE DURING PREGNANCY: UNK)
     Route: 065
  81. CLONIDINE [Suspect]
     Active Substance: CLONIDINE
     Indication: Foetal exposure during pregnancy
     Dosage: UNK (MATERNAL EXPOSURE DURING PREGNANCY: UNK)
     Route: 065
  82. CLONIDINE [Suspect]
     Active Substance: CLONIDINE
     Dosage: UNK (MATERNAL EXPOSURE DURING PREGNANCY: UNK)
     Route: 065
  83. CLONIDINE [Suspect]
     Active Substance: CLONIDINE
     Dosage: UNK (MATERNAL EXPOSURE DURING PREGNANCY: UNK)
     Route: 065
  84. CLONIDINE HYDROCHLORIDE [Suspect]
     Active Substance: CLONIDINE HYDROCHLORIDE
     Indication: Foetal exposure during pregnancy
     Dosage: UNK (MATERNAL EXPOSURE DURING PREGNANCY: UNK)
     Route: 065
  85. CLONIDINE HYDROCHLORIDE [Suspect]
     Active Substance: CLONIDINE HYDROCHLORIDE
     Dosage: UNK (MATERNAL EXPOSURE DURING PREGNANCY: UNK)
     Route: 065
  86. CODEINE [Suspect]
     Active Substance: CODEINE
     Indication: Foetal exposure during pregnancy
     Dosage: UNK (MATERNAL EXPOSURE DURING PREGNANCY: UNK)
     Route: 065
  87. CODEINE [Suspect]
     Active Substance: CODEINE
     Dosage: UNK (MATERNAL EXPOSURE DURING PREGNANCY: UNK)
     Route: 065
  88. CRINONE [Suspect]
     Active Substance: PROGESTERONE
     Indication: Foetal exposure during pregnancy
     Dosage: UNK (MATERNAL EXPOSURE DURING PREGNANCY: UNK)
     Route: 065
  89. CYCLOBENZAPRINE [Suspect]
     Active Substance: CYCLOBENZAPRINE
     Indication: Foetal exposure during pregnancy
     Dosage: UNK (MATERNAL EXPOSURE DURING PREGNANCY: UNK)
     Route: 064
  90. CYCLOBENZAPRINE HYDROCHLORIDE [Suspect]
     Active Substance: CYCLOBENZAPRINE HYDROCHLORIDE
     Indication: Foetal exposure during pregnancy
     Dosage: UNK (MATERNAL EXPOSURE DURING PREGNANCY: UNK)
     Route: 065
  91. CYCLOBENZAPRINE HYDROCHLORIDE [Suspect]
     Active Substance: CYCLOBENZAPRINE HYDROCHLORIDE
     Dosage: UNK (MATERNAL EXPOSURE DURING PREGNANCY: UNK)
     Route: 065
  92. DEMEROL [Suspect]
     Active Substance: MEPERIDINE HYDROCHLORIDE
     Indication: Foetal exposure during pregnancy
     Dosage: UNK (MATERNAL EXPOSURE DURING PREGNANCY: UNK)
     Route: 065
  93. ENBREL [Suspect]
     Active Substance: ETANERCEPT
     Indication: Foetal exposure during pregnancy
     Dosage: UNK (MATERNAL EXPOSURE DURING PREGNANCY: UNK)
     Route: 065
  94. FLOVENT [Suspect]
     Active Substance: FLUTICASONE PROPIONATE
     Indication: Foetal exposure during pregnancy
     Dosage: UNK (MATERNAL EXPOSURE DURING PREGNANCY: UNK)
     Route: 065
  95. FLUCONAZOLE [Suspect]
     Active Substance: FLUCONAZOLE
     Indication: Foetal exposure during pregnancy
     Dosage: UNK (MATERNAL EXPOSURE DURING PREGNANCY: UNK)
     Route: 065
  96. FLUTICASONE PROPIONATE\SALMETEROL XINAFOATE [Suspect]
     Active Substance: FLUTICASONE PROPIONATE\SALMETEROL XINAFOATE
     Indication: Foetal exposure during pregnancy
     Dosage: 500 MG (MATERNAL EXPOSURE DURING PREGNANCY: 500 MG)
     Route: 065
  97. FLUTICASONE PROPIONATE\SALMETEROL XINAFOATE [Suspect]
     Active Substance: FLUTICASONE PROPIONATE\SALMETEROL XINAFOATE
     Dosage: 500 MG (MATERNAL EXPOSURE DURING PREGNANCY: 500 MG)
     Route: 065
  98. FLUTICASONE PROPIONATE\SALMETEROL XINAFOATE [Suspect]
     Active Substance: FLUTICASONE PROPIONATE\SALMETEROL XINAFOATE
     Dosage: 500 MG, QD (MATERNAL EXPOSURE DURING PREGNANCY: 500 MG, QD)
     Route: 065
  99. FLUTICASONE PROPIONATE\SALMETEROL XINAFOATE [Suspect]
     Active Substance: FLUTICASONE PROPIONATE\SALMETEROL XINAFOATE
     Dosage: 1000 MG, QD (MATERNAL EXPOSURE DURING PREGNANCY: 500 MG, BID)
     Route: 065
  100. FLUTICASONE PROPIONATE\SALMETEROL XINAFOATE [Suspect]
     Active Substance: FLUTICASONE PROPIONATE\SALMETEROL XINAFOATE
     Dosage: 500 MG, QD (MATERNAL EXPOSURE DURING PREGNANCY: 500 MG, QD)
     Route: 065
  101. FLUTICASONE PROPIONATE\SALMETEROL XINAFOATE [Suspect]
     Active Substance: FLUTICASONE PROPIONATE\SALMETEROL XINAFOATE
     Dosage: 500 MG (MATERNAL EXPOSURE DURING PREGNANCY: 500 MG)
     Route: 065
  102. FLUTICASONE PROPIONATE\SALMETEROL XINAFOATE [Suspect]
     Active Substance: FLUTICASONE PROPIONATE\SALMETEROL XINAFOATE
     Dosage: 1000 MG, QD (MATERNAL EXPOSURE DURING PREGNANCY: 500 MG, BID)
     Route: 065
  103. FLUTICASONE PROPIONATE\SALMETEROL XINAFOATE [Suspect]
     Active Substance: FLUTICASONE PROPIONATE\SALMETEROL XINAFOATE
     Dosage: 1000 MG, QD (MATERNAL EXPOSURE DURING PREGNANCY: 500 MG, BID)
     Route: 065
  104. FLUTICASONE PROPIONATE\SALMETEROL XINAFOATE [Suspect]
     Active Substance: FLUTICASONE PROPIONATE\SALMETEROL XINAFOATE
     Dosage: 500 MG (MATERNAL EXPOSURE DURING PREGNANCY: 500 MG)
     Route: 065
  105. FUROSEMIDE [Suspect]
     Active Substance: FUROSEMIDE
     Indication: Foetal exposure during pregnancy
     Dosage: UNK (MATERNAL EXPOSURE DURING PREGNANCY: UNK)
     Route: 065
  106. GABAPENTIN [Suspect]
     Active Substance: GABAPENTIN
     Indication: Foetal exposure during pregnancy
     Dosage: UNK (MATERNAL EXPOSURE DURING PREGNANCY: UNK)
     Route: 065
  107. HUMIRA [Suspect]
     Active Substance: ADALIMUMAB
     Indication: Foetal exposure during pregnancy
     Dosage: UNK (MATERNAL EXPOSURE DURING PREGNANCY: UNK (SOLUTION SUBCUTANEOUS))
     Route: 064
  108. HUMIRA [Suspect]
     Active Substance: ADALIMUMAB
     Dosage: UNK (MATERNAL EXPOSURE DURING PREGNANCY: UNK)
     Route: 064
  109. HYDROMORPHONE [Suspect]
     Active Substance: HYDROMORPHONE
     Indication: Foetal exposure during pregnancy
     Dosage: UNK (MATERNAL EXPOSURE DURING PREGNANCY: UNK (UNKNOWN FORMULATION))
     Route: 065
  110. HYDROMORPHONE [Suspect]
     Active Substance: HYDROMORPHONE
     Dosage: UNK (MATERNAL EXPOSURE DURING PREGNANCY: UNK)
     Route: 065
  111. HYDROMORPHONE HYDROCHLORIDE [Suspect]
     Active Substance: HYDROMORPHONE HYDROCHLORIDE
     Indication: Foetal exposure during pregnancy
     Dosage: UNK (MATERNAL EXPOSURE DURING PREGNANCY: UNK)
     Route: 065
  112. HYDROMORPHONE HYDROCHLORIDE [Suspect]
     Active Substance: HYDROMORPHONE HYDROCHLORIDE
     Dosage: UNK (MATERNAL EXPOSURE DURING PREGNANCY: UNK)
     Route: 065
  113. HYDROMORPHONE HYDROCHLORIDE [Suspect]
     Active Substance: HYDROMORPHONE HYDROCHLORIDE
     Indication: Foetal exposure during pregnancy
     Dosage: UNK (MATERNAL EXPOSURE DURING PREGNANCY: UNK)
     Route: 065
  114. HYDROMORPHONE HYDROCHLORIDE [Suspect]
     Active Substance: HYDROMORPHONE HYDROCHLORIDE
     Dosage: UNK (MATERNAL EXPOSURE DURING PREGNANCY: UNK)
     Route: 065
  115. KETOPROFEN [Suspect]
     Active Substance: KETOPROFEN
     Indication: Foetal exposure during pregnancy
     Dosage: UNK (MATERNAL EXPOSURE DURING PREGNANCY: UNK)
     Route: 065
  116. METHYLPREDNISOLONE [Suspect]
     Active Substance: METHYLPREDNISOLONE
     Indication: Foetal exposure during pregnancy
     Dosage: UNK (MATERNAL EXPOSURE DURING PREGNANCY: UNK)
     Route: 065
  117. METHYLPREDNISOLONE [Suspect]
     Active Substance: METHYLPREDNISOLONE
     Dosage: 1 DF (MATERNAL EXPOSURE DURING PREGNANCY: 1 DOSAGE FORM)
     Route: 065
  118. METHYLPREDNISOLONE ACETATE [Suspect]
     Active Substance: METHYLPREDNISOLONE ACETATE
     Indication: Foetal exposure during pregnancy
     Dosage: UNK (MATERNAL EXPOSURE DURING PREGNANCY: UNK)
     Route: 065
  119. METHYLPREDNISOLONE ACETATE [Suspect]
     Active Substance: METHYLPREDNISOLONE ACETATE
     Dosage: 1 DF (MATERNAL EXPOSURE DURING PREGNANCY: 1 DOSAGE FORM)
     Route: 065
  120. METHYLPREDNISOLONE ACETATE [Suspect]
     Active Substance: METHYLPREDNISOLONE ACETATE
     Dosage: 1 DF (MATERNAL EXPOSURE DURING PREGNANCY: 1 DOSAGE FORM)
     Route: 065
  121. METHYLPREDNISOLONE ACETATE [Suspect]
     Active Substance: METHYLPREDNISOLONE ACETATE
     Dosage: UNK (MATERNAL EXPOSURE DURING PREGNANCY: UNK)
     Route: 065
  122. METHYLPREDNISOLONE ACETATE [Suspect]
     Active Substance: METHYLPREDNISOLONE ACETATE
     Dosage: 1 DF (MATERNAL EXPOSURE DURING PREGNANCY: 1 DOSAGE FORM)
     Route: 065
  123. METHYLPREDNISOLONE ACETATE [Suspect]
     Active Substance: METHYLPREDNISOLONE ACETATE
     Dosage: UNK UNK, QD (1 EVERY 1 DAYS)
     Route: 065
  124. METHYLPREDNISOLONE ACETATE [Suspect]
     Active Substance: METHYLPREDNISOLONE ACETATE
     Dosage: UNK UNK, QD (1 EVERY 1 DAYS)
     Route: 065
  125. METHYLPREDNISOLONE ACETATE [Suspect]
     Active Substance: METHYLPREDNISOLONE ACETATE
     Dosage: 1 DF, QD (MATERNAL EXPOSURE DURING PREGNANCY: 1 DOSAGE FORM, QD)
     Route: 065
  126. METHYLPREDNISOLONE ACETATE [Suspect]
     Active Substance: METHYLPREDNISOLONE ACETATE
     Dosage: UNK (MATERNAL EXPOSURE DURING PREGNANCY: UNK)
     Route: 065
  127. METHYLPREDNISOLONE SODIUM SUCCINATE [Suspect]
     Active Substance: METHYLPREDNISOLONE SODIUM SUCCINATE
     Indication: Foetal exposure during pregnancy
     Dosage: 1 DF (MATERNAL EXPOSURE DURING PREGNANCY: 1 DOSAGE FORM)
     Route: 065
  128. METHYLPREDNISOLONE SODIUM PHOSPHATE [Suspect]
     Active Substance: METHYLPREDNISOLONE SODIUM PHOSPHATE
     Indication: Foetal exposure during pregnancy
     Dosage: UNK (MATERNAL EXPOSURE DURING PREGNANCY: UNK)
     Route: 065
  129. MONTELUKAST SODIUM [Suspect]
     Active Substance: MONTELUKAST SODIUM
     Indication: Foetal exposure during pregnancy
     Dosage: UNK (MATERNAL EXPOSURE DURING PREGNANCY: UNK)
     Route: 065
  130. MORPHINE SULFATE [Suspect]
     Active Substance: MORPHINE SULFATE
     Indication: Foetal exposure during pregnancy
     Dosage: UNK (MATERNAL EXPOSURE DURING PREGNANCY: UNK)
     Route: 064
  131. MORPHINE SULFATE [Suspect]
     Active Substance: MORPHINE SULFATE
     Dosage: UNK (MATERNAL EXPOSURE DURING PREGNANCY: UNK)
     Route: 064
  132. MOXIFLOXACIN HYDROCHLORIDE [Suspect]
     Active Substance: MOXIFLOXACIN HYDROCHLORIDE\MOXIFLOXACIN HYDROCHLORIDE MONOHYDRATE
     Indication: Foetal exposure during pregnancy
     Dosage: UNK (MATERNAL EXPOSURE DURING PREGNANCY: UNK)
     Route: 064
  133. MOXIFLOXACIN HYDROCHLORIDE [Suspect]
     Active Substance: MOXIFLOXACIN HYDROCHLORIDE\MOXIFLOXACIN HYDROCHLORIDE MONOHYDRATE
     Dosage: UNK (MATERNAL EXPOSURE DURING PREGNANCY: UNK)
     Route: 065
  134. NORTRIPTYLINE [Suspect]
     Active Substance: NORTRIPTYLINE
     Indication: Foetal exposure during pregnancy
     Dosage: UNK (MATERNAL EXPOSURE DURING PREGNANCY: UNK)
     Route: 065
  135. NORTRIPTYLINE HYDROCHLORIDE [Suspect]
     Active Substance: NORTRIPTYLINE HYDROCHLORIDE
     Indication: Foetal exposure during pregnancy
     Dosage: 10 MG (MATERNAL EXPOSURE DURING PREGNANCY: 10 MG)
     Route: 065
  136. NORTRIPTYLINE HYDROCHLORIDE [Suspect]
     Active Substance: NORTRIPTYLINE HYDROCHLORIDE
     Dosage: 10 MG (MATERNAL EXPOSURE DURING PREGNANCY: 10 MG)
     Route: 065
  137. NORTRIPTYLINE HYDROCHLORIDE [Suspect]
     Active Substance: NORTRIPTYLINE HYDROCHLORIDE
     Dosage: 10 MG (MATERNAL EXPOSURE DURING PREGNANCY: 10 MG)
     Route: 065
  138. NORTRIPTYLINE HYDROCHLORIDE [Suspect]
     Active Substance: NORTRIPTYLINE HYDROCHLORIDE
     Dosage: UNK (MATERNAL EXPOSURE DURING PREGNANCY: UNK)
     Route: 065
  139. ONDANSETRON [Suspect]
     Active Substance: ONDANSETRON
     Indication: Foetal exposure during pregnancy
     Dosage: UNK (MATERNAL EXPOSURE DURING PREGNANCY: UNK)
     Route: 065
  140. ORENCIA [Suspect]
     Active Substance: ABATACEPT
     Indication: Foetal exposure during pregnancy
     Dosage: 1 DF, WE (MATERNAL EXPOSURE DURING PREGNANCY: 1 DOSAGE FORM, QW)
     Route: 064
  141. ORENCIA [Suspect]
     Active Substance: ABATACEPT
     Dosage: UNK (MATERNAL EXPOSURE DURING PREGNANCY: UNK)
     Route: 065
  142. PANTOPRAZOLE MAGNESIUM [Suspect]
     Active Substance: PANTOPRAZOLE MAGNESIUM
     Indication: Foetal exposure during pregnancy
     Dosage: UNK (MATERNAL EXPOSURE DURING PREGNANCY: UNK)
     Route: 065
  143. PANTOPRAZOLE MAGNESIUM [Suspect]
     Active Substance: PANTOPRAZOLE MAGNESIUM
     Dosage: UNK (MATERNAL EXPOSURE DURING PREGNANCY: UNK)
     Route: 065
  144. PANTOPRAZOLE MAGNESIUM [Suspect]
     Active Substance: PANTOPRAZOLE MAGNESIUM
     Dosage: UNK (MATERNAL EXPOSURE DURING PREGNANCY: UNK)
     Route: 065
  145. PANTOPRAZOLE MAGNESIUM [Suspect]
     Active Substance: PANTOPRAZOLE MAGNESIUM
     Dosage: UNK (MATERNAL EXPOSURE DURING PREGNANCY: UNK)
     Route: 065
  146. PANTOPRAZOLE MAGNESIUM [Suspect]
     Active Substance: PANTOPRAZOLE MAGNESIUM
     Dosage: UNK (MATERNAL EXPOSURE DURING PREGNANCY: UNK)
     Route: 065
  147. PANTOPRAZOLE MAGNESIUM [Suspect]
     Active Substance: PANTOPRAZOLE MAGNESIUM
     Dosage: UNK (MATERNAL EXPOSURE DURING PREGNANCY: UNK)
     Route: 065
  148. HERBALS\PLANTAGO OVATA LEAF [Suspect]
     Active Substance: HERBALS\PLANTAGO OVATA LEAF
     Indication: Foetal exposure during pregnancy
     Dosage: UNK (MATERNAL EXPOSURE DURING PREGNANCY: UNK)
     Route: 065
  149. PROGESTERONE [Suspect]
     Active Substance: PROGESTERONE
     Indication: Foetal exposure during pregnancy
     Dosage: UNK (MATERNAL EXPOSURE DURING PREGNANCY: UNK)
     Route: 065
  150. PROGESTERONE [Suspect]
     Active Substance: PROGESTERONE
     Dosage: UNK (MATERNAL EXPOSURE DURING PREGNANCY: UNK(FORMULATION:GEL))
     Route: 065
  151. PROGESTERONE [Suspect]
     Active Substance: PROGESTERONE
     Dosage: UNK (MATERNAL EXPOSURE DURING PREGNANCY: UNK (FORMULATION:UNKNOWN))
     Route: 064
  152. PROGESTERONE [Suspect]
     Active Substance: PROGESTERONE
     Dosage: UNK (MATERNAL EXPOSURE DURING PREGNANCY: UNK (FORMULATION:TABLET))
     Route: 065
  153. PROGESTERONE [Suspect]
     Active Substance: PROGESTERONE
     Dosage: UNK (MATERNAL EXPOSURE DURING PREGNANCY: UNK (FORMULATION:GEL))
     Route: 065
  154. PROGESTERONE [Suspect]
     Active Substance: PROGESTERONE
     Dosage: UNK (MATERNAL EXPOSURE DURING PREGNANCY: UNK)
     Route: 065
  155. PROGESTERONE [Suspect]
     Active Substance: PROGESTERONE
     Dosage: UNK (MATERNAL EXPOSURE DURING PREGNANCY: UNK)
     Route: 064
  156. PROGESTERONE [Suspect]
     Active Substance: PROGESTERONE
     Dosage: UNK (MATERNAL EXPOSURE DURING PREGNANCY: UNK)
     Route: 065
  157. PROGESTERONE [Suspect]
     Active Substance: PROGESTERONE
     Dosage: UNK (MATERNAL EXPOSURE DURING PREGNANCY: UNK)
     Route: 065
  158. PROGESTERONE [Suspect]
     Active Substance: PROGESTERONE
     Dosage: UNK (MATERNAL EXPOSURE DURING PREGNANCY: UNK)
     Route: 064
  159. PROGESTERONE [Suspect]
     Active Substance: PROGESTERONE
     Dosage: UNK (MATERNAL EXPOSURE DURING PREGNANCY: UNK)
     Route: 064
  160. PROGESTERONE [Suspect]
     Active Substance: PROGESTERONE
     Dosage: UNK (MATERNAL EXPOSURE DURING PREGNANCY: UNK)
     Route: 064
  161. PROGESTERONE [Suspect]
     Active Substance: PROGESTERONE
     Dosage: UNK (MATERNAL EXPOSURE DURING PREGNANCY: UNK)
     Route: 064
  162. PROGESTERONE [Suspect]
     Active Substance: PROGESTERONE
     Indication: Foetal exposure during pregnancy
     Dosage: UNK (MATERNAL EXPOSURE DURING PREGNANCY: UNK)
     Route: 065
  163. PROGESTERONE [Suspect]
     Active Substance: PROGESTERONE
     Dosage: UNK (MATERNAL EXPOSURE DURING PREGNANCY: UNK)
     Route: 065
  164. PROGESTERONE [Suspect]
     Active Substance: PROGESTERONE
     Dosage: UNK (MATERNAL EXPOSURE DURING PREGNANCY: UNK)
     Route: 065
  165. PROGESTERONE [Suspect]
     Active Substance: PROGESTERONE
     Dosage: UNK (MATERNAL EXPOSURE DURING PREGNANCY: UNK)
     Route: 065
  166. PROGESTERONE [Suspect]
     Active Substance: PROGESTERONE
     Dosage: UNK (MATERNAL EXPOSURE DURING PREGNANCY: UNK)
     Route: 065
  167. PROGESTERONE [Suspect]
     Active Substance: PROGESTERONE
     Dosage: UNK (MATERNAL EXPOSURE DURING PREGNANCY: UNK)
     Route: 065
  168. PROGESTERONE [Suspect]
     Active Substance: PROGESTERONE
     Dosage: UNK (MATERNAL EXPOSURE DURING PREGNANCY: UNK)
     Route: 065
  169. PROMETRIUM [Suspect]
     Active Substance: PROGESTERONE
     Indication: Foetal exposure during pregnancy
     Dosage: UNK (MATERNAL EXPOSURE DURING PREGNANCY: UNK)
     Route: 065
  170. PROMETRIUM [Suspect]
     Active Substance: PROGESTERONE
     Dosage: UNK (MATERNAL EXPOSURE DURING PREGNANCY: UNK)
     Route: 065
  171. PSYLLIUM HUSK [Suspect]
     Active Substance: PSYLLIUM HUSK
     Indication: Foetal exposure during pregnancy
     Dosage: UNK (MATERNAL EXPOSURE DURING PREGNANCY: UNK)
     Route: 065
  172. QUETIAPINE FUMARATE [Suspect]
     Active Substance: QUETIAPINE FUMARATE
     Indication: Foetal exposure during pregnancy
     Dosage: UNK (MATERNAL EXPOSURE DURING PREGNANCY: UNK)
     Route: 065
  173. RANITIDINE HYDROCHLORIDE [Suspect]
     Active Substance: RANITIDINE HYDROCHLORIDE
     Indication: Foetal exposure during pregnancy
     Dosage: 20 MG, QD (MATERNAL EXPOSURE DURING PREGNANCY: 20 MG, QD)
     Route: 065
  174. RANITIDINE HYDROCHLORIDE [Suspect]
     Active Substance: RANITIDINE HYDROCHLORIDE
     Dosage: UNK (MATERNAL EXPOSURE DURING PREGNANCY: UNK)
     Route: 065
  175. RANITIDINE HYDROCHLORIDE [Suspect]
     Active Substance: RANITIDINE HYDROCHLORIDE
     Dosage: UNK (MATERNAL EXPOSURE DURING PREGNANCY: UNK)
     Route: 065
  176. RANITIDINE HYDROCHLORIDE [Suspect]
     Active Substance: RANITIDINE HYDROCHLORIDE
     Dosage: 20 MG, QD (MATERNAL EXPOSURE DURING PREGNANCY: 20 MG, QD)
     Route: 065
  177. RANITIDINE HYDROCHLORIDE [Suspect]
     Active Substance: RANITIDINE HYDROCHLORIDE
     Dosage: 20 MG, QD (MATERNAL EXPOSURE DURING PREGNANCY: 20 MG, QD)
     Route: 065
  178. RANITIDINE HYDROCHLORIDE [Suspect]
     Active Substance: RANITIDINE HYDROCHLORIDE
     Dosage: UNK (MATERNAL EXPOSURE DURING PREGNANCY: UNK)
     Route: 065
  179. RANITIDINE HYDROCHLORIDE [Suspect]
     Active Substance: RANITIDINE HYDROCHLORIDE
     Dosage: UNK (MATERNAL EXPOSURE DURING PREGNANCY: UNK)
     Route: 065
  180. RANITIDINE HYDROCHLORIDE [Suspect]
     Active Substance: RANITIDINE HYDROCHLORIDE
     Dosage: 20 MG, QD (MATERNAL EXPOSURE DURING PREGNANCY: 20 MG, QD)
     Route: 065
  181. RANITIDINE HYDROCHLORIDE [Suspect]
     Active Substance: RANITIDINE HYDROCHLORIDE
     Dosage: 20 MG, QD (MATERNAL EXPOSURE DURING PREGNANCY: 20 MG, QD)
     Route: 065
  182. CETIRIZINE HYDROCHLORIDE [Suspect]
     Active Substance: CETIRIZINE HYDROCHLORIDE
     Indication: Foetal exposure during pregnancy
     Dosage: 20 MG, QD (MATERNAL EXPOSURE DURING PREGNANCY: 20 MG, QD)
     Route: 065
  183. CETIRIZINE HYDROCHLORIDE [Suspect]
     Active Substance: CETIRIZINE HYDROCHLORIDE
     Dosage: 20 MG, QD (MATERNAL EXPOSURE DURING PREGNANCY: 20 MG, QD)
     Route: 065
  184. CETIRIZINE HYDROCHLORIDE [Suspect]
     Active Substance: CETIRIZINE HYDROCHLORIDE
     Dosage: 20 MG, QD (MATERNAL EXPOSURE DURING PREGNANCY: 20 MG, QD)
     Route: 065
  185. REMICADE [Suspect]
     Active Substance: INFLIXIMAB
     Indication: Foetal exposure during pregnancy
     Dosage: UNK (MATERNAL EXPOSURE DURING PREGNANCY: UNK)
     Route: 064
  186. REMICADE [Suspect]
     Active Substance: INFLIXIMAB
     Dosage: UNK (MATERNAL EXPOSURE DURING PREGNANCY: UNK)
     Route: 064
  187. RESTORIL [Suspect]
     Active Substance: TEMAZEPAM
     Indication: Foetal exposure during pregnancy
     Dosage: UNK (MATERNAL EXPOSURE DURING PREGNANCY: UNK)
     Route: 065
  188. RESTORIL [Suspect]
     Active Substance: TEMAZEPAM
     Dosage: UNK (MATERNAL EXPOSURE DURING PREGNANCY: UNK)
     Route: 065
  189. RITUXIMAB [Suspect]
     Active Substance: RITUXIMAB
     Indication: Foetal exposure during pregnancy
     Dosage: 1000 MG, QD (MATERNAL EXPOSURE DURING PREGNANCY: 1000 MG, QD)
     Route: 064
  190. RITUXIMAB [Suspect]
     Active Substance: RITUXIMAB
     Dosage: 1000 MG (MATERNAL EXPOSURE DURING PREGNANCY: 1000 MG)
     Route: 064
  191. RITUXIMAB [Suspect]
     Active Substance: RITUXIMAB
     Dosage: 1000 MG, QD (MATERNAL EXPOSURE DURING PREGNANCY: 1000 MG, QD)
     Route: 064
  192. RITUXIMAB [Suspect]
     Active Substance: RITUXIMAB
     Dosage: 1000 MG (MATERNAL EXPOSURE DURING PREGNANCY: 1000 MG)
     Route: 064
  193. RITUXIMAB [Suspect]
     Active Substance: RITUXIMAB
     Dosage: 1000 MG, QD (MATERNAL EXPOSURE DURING PREGNANCY: 1000 MG, QD)
     Route: 064
  194. RITUXIMAB [Suspect]
     Active Substance: RITUXIMAB
     Dosage: 1000 MG, QD (MATERNAL EXPOSURE DURING PREGNANCY: 1000 MG, QD)
     Route: 064
  195. RITUXIMAB [Suspect]
     Active Substance: RITUXIMAB
     Dosage: 1000 MG, QD (MATERNAL EXPOSURE DURING PREGNANCY: 1000 MG, QD)
     Route: 064
  196. RITUXIMAB [Suspect]
     Active Substance: RITUXIMAB
     Dosage: 1000 MG, QD (MATERNAL EXPOSURE DURING PREGNANCY: 1000 MG, QD)
     Route: 064
  197. RITUXIMAB [Suspect]
     Active Substance: RITUXIMAB
     Dosage: 1000 MG, QD (MATERNAL EXPOSURE DURING PREGNANCY: 1000 MG, QD)
     Route: 064
  198. RITUXIMAB [Suspect]
     Active Substance: RITUXIMAB
     Dosage: 1000 MG, QD (MATERNAL EXPOSURE DURING PREGNANCY: 1000 MG, QD)
     Route: 064
  199. RITUXIMAB [Suspect]
     Active Substance: RITUXIMAB
     Dosage: 1000 MG (MATERNAL EXPOSURE DURING PREGNANCY: 1000 MG)
     Route: 064
  200. RITUXIMAB [Suspect]
     Active Substance: RITUXIMAB
     Dosage: 1000 MG, QD (MATERNAL EXPOSURE DURING PREGNANCY: 1000 MG, QD)
     Route: 064
  201. RITUXIMAB [Suspect]
     Active Substance: RITUXIMAB
     Dosage: 1000 MG (MATERNAL EXPOSURE DURING PREGNANCY: 1000 MG)
     Route: 064
  202. RITUXIMAB [Suspect]
     Active Substance: RITUXIMAB
     Dosage: UNK (MATERNAL EXPOSURE DURING PREGNANCY: UNK)
     Route: 065
  203. RITUXIMAB [Suspect]
     Active Substance: RITUXIMAB
     Dosage: 1000 MG (MATERNAL EXPOSURE DURING PREGNANCY: 1000 MG)
     Route: 064
  204. ALBUTEROL [Suspect]
     Active Substance: ALBUTEROL
     Indication: Foetal exposure during pregnancy
     Dosage: UNK (MATERNAL EXPOSURE DURING PREGNANCY: UNK)
     Route: 065
  205. ALBUTEROL [Suspect]
     Active Substance: ALBUTEROL
     Dosage: UNK (MATERNAL EXPOSURE DURING PREGNANCY: UNK)
     Route: 065
  206. ALBUTEROL [Suspect]
     Active Substance: ALBUTEROL
     Dosage: UNK (MATERNAL EXPOSURE DURING PREGNANCY: UNK)
     Route: 065
  207. ALBUTEROL [Suspect]
     Active Substance: ALBUTEROL
     Dosage: UNK (MATERNAL EXPOSURE DURING PREGNANCY: UNK)
     Route: 065
  208. SENNA LEAF [Suspect]
     Active Substance: SENNA LEAF
     Indication: Foetal exposure during pregnancy
     Dosage: UNK (MATERNAL EXPOSURE DURING PREGNANCY: UNK (DROPS ORAL))
     Route: 064
  209. SENNA LEAF [Suspect]
     Active Substance: SENNA LEAF
     Dosage: UNK (MATERNAL EXPOSURE DURING PREGNANCY: UNK(UNKNOWN FORMULATION))
     Route: 065
  210. SENNA LEAF [Suspect]
     Active Substance: SENNA LEAF
     Dosage: UNK (MATERNAL EXPOSURE DURING PREGNANCY: UNK)
     Route: 065
  211. SENNA LEAF [Suspect]
     Active Substance: SENNA LEAF
     Dosage: UNK (MATERNAL EXPOSURE DURING PREGNANCY: UNK)
     Route: 064
  212. SENNA LEAF [Suspect]
     Active Substance: SENNA LEAF
     Dosage: UNK (MATERNAL EXPOSURE DURING PREGNANCY: UNK)
     Route: 065
  213. SENNA LEAF [Suspect]
     Active Substance: SENNA LEAF
     Dosage: UNK (MATERNAL EXPOSURE DURING PREGNANCY: UNK)
     Route: 065
  214. SENNA LEAF [Suspect]
     Active Substance: SENNA LEAF
     Dosage: UNK (MATERNAL EXPOSURE DURING PREGNANCY: UNK)
     Route: 065
  215. SENNOSIDES A AND B [Suspect]
     Active Substance: SENNOSIDES A AND B
     Indication: Foetal exposure during pregnancy
     Dosage: 8.6 MG (MATERNAL EXPOSURE DURING PREGNANCY: 8.6 MG)
     Route: 065
  216. SENNOSIDES A AND B [Suspect]
     Active Substance: SENNOSIDES A AND B
     Dosage: 8.6 MG (MATERNAL EXPOSURE DURING PREGNANCY: 8.6 MG)
     Route: 065
  217. SENNOSIDES A AND B [Suspect]
     Active Substance: SENNOSIDES A AND B
     Dosage: 8.5 MG (MATERNAL EXPOSURE DURING PREGNANCY: 8.5 MG)
     Route: 065
  218. SENNOSIDES A AND B [Suspect]
     Active Substance: SENNOSIDES A AND B
     Dosage: UNK (MATERNAL EXPOSURE DURING PREGNANCY: UNK)
     Route: 065
  219. SENNOSIDES A AND B [Suspect]
     Active Substance: SENNOSIDES A AND B
     Dosage: 8.5 MG (MATERNAL EXPOSURE DURING PREGNANCY: 8.5 MG)
     Route: 065
  220. SENNOSIDES A AND B [Suspect]
     Active Substance: SENNOSIDES A AND B
     Dosage: UNK (MATERNAL EXPOSURE DURING PREGNANCY: UNK)
     Route: 065
  221. SINGULAIR [Suspect]
     Active Substance: MONTELUKAST SODIUM
     Indication: Foetal exposure during pregnancy
     Dosage: UNK (MATERNAL EXPOSURE DURING PREGNANCY: UNK)
     Route: 065
  222. SODIUM PICOSULFATE [Suspect]
     Active Substance: SODIUM PICOSULFATE
     Indication: Foetal exposure during pregnancy
     Dosage: UNK (MATERNAL EXPOSURE DURING PREGNANCY: UNK)
     Route: 065
  223. PANTOPRAZOLE MAGNESIUM [Suspect]
     Active Substance: PANTOPRAZOLE MAGNESIUM
     Indication: Foetal exposure during pregnancy
     Dosage: UNK (MATERNAL EXPOSURE DURING PREGNANCY: UNK(TABLET(ENTERIC-COATED))
     Route: 065
  224. TEMAZEPAM [Suspect]
     Active Substance: TEMAZEPAM
     Indication: Foetal exposure during pregnancy
     Dosage: UNK (MATERNAL EXPOSURE DURING PREGNANCY: UNK)
     Route: 065
  225. TOCILIZUMAB [Suspect]
     Active Substance: TOCILIZUMAB
     Indication: Foetal exposure during pregnancy
     Dosage: UNK (MATERNAL EXPOSURE DURING PREGNANCY: UNK)
     Route: 064
  226. TOCILIZUMAB [Suspect]
     Active Substance: TOCILIZUMAB
     Dosage: UNK (MATERNAL EXPOSURE DURING PREGNANCY: UNK)
     Route: 065
  227. TOCILIZUMAB [Suspect]
     Active Substance: TOCILIZUMAB
     Dosage: 1000 MG, QD (MATERNAL EXPOSURE DURING PREGNANCY: 500 MG, BID)
     Route: 064
  228. TYLENOL [Suspect]
     Active Substance: ACETAMINOPHEN
     Indication: Foetal exposure during pregnancy
     Dosage: UNK (MATERNAL EXPOSURE DURING PREGNANCY: UNK)
     Route: 065
  229. VENLAFAXINE HYDROCHLORIDE [Suspect]
     Active Substance: VENLAFAXINE HYDROCHLORIDE
     Indication: Foetal exposure during pregnancy
     Dosage: UNK (MATERNAL EXPOSURE DURING PREGNANCY: UNK)
     Route: 065
  230. VENTOLIN [Suspect]
     Active Substance: ALBUTEROL SULFATE
     Indication: Foetal exposure during pregnancy
     Dosage: UNK (MATERNAL EXPOSURE DURING PREGNANCY: UNK)
     Route: 065
  231. VENTOLIN [Suspect]
     Active Substance: ALBUTEROL SULFATE
     Dosage: UNK (MATERNAL EXPOSURE DURING PREGNANCY: UNK)
     Route: 065
  232. WELLBUTRIN [Suspect]
     Active Substance: BUPROPION HYDROCHLORIDE
     Indication: Foetal exposure during pregnancy
     Dosage: UNK (MATERNAL EXPOSURE DURING PREGNANCY: UNK)
     Route: 065
  233. WELLBUTRIN [Suspect]
     Active Substance: BUPROPION HYDROCHLORIDE
     Dosage: UNK (MATERNAL EXPOSURE DURING PREGNANCY: UNK)
     Route: 065
  234. WELLBUTRIN [Suspect]
     Active Substance: BUPROPION HYDROCHLORIDE
     Dosage: UNK (MATERNAL EXPOSURE DURING PREGNANCY: UNK)
     Route: 065
  235. WELLBUTRIN [Suspect]
     Active Substance: BUPROPION HYDROCHLORIDE
     Dosage: 150 MG (MATERNAL EXPOSURE DURING PREGNANCY: 150 MG)
     Route: 065
  236. WELLBUTRIN [Suspect]
     Active Substance: BUPROPION HYDROCHLORIDE
     Dosage: UNK (MATERNAL EXPOSURE DURING PREGNANCY: UNK)
     Route: 065
  237. WELLBUTRIN [Suspect]
     Active Substance: BUPROPION HYDROCHLORIDE
     Dosage: 150 MG (MATERNAL EXPOSURE DURING PREGNANCY: 150 MG)
     Route: 065
  238. WELLBUTRIN [Suspect]
     Active Substance: BUPROPION HYDROCHLORIDE
     Dosage: UNK (MATERNAL EXPOSURE DURING PREGNANCY: UNK)
     Route: 065
  239. WELLBUTRIN [Suspect]
     Active Substance: BUPROPION HYDROCHLORIDE
     Dosage: 150 MG (MATERNAL EXPOSURE DURING PREGNANCY: 150 MG (TABLET(EXTENDED-RELEASE))
     Route: 065
  240. ZOPICLONE [Suspect]
     Active Substance: ZOPICLONE
     Indication: Foetal exposure during pregnancy
     Dosage: UNK (MATERNAL EXPOSURE DURING PREGNANCY: UNK)
     Route: 065
  241. DOLUTEGRAVIR SODIUM [Concomitant]
     Active Substance: DOLUTEGRAVIR SODIUM
     Indication: Foetal exposure during pregnancy
     Dosage: UNK (MATERNAL EXPOSURE DURING PREGNANCY: UNK)
     Route: 065
  242. VITAMIN C [Concomitant]
     Active Substance: ASCORBIC ACID
     Indication: Foetal exposure during pregnancy
     Dosage: UNK (MATERNAL EXPOSURE DURING PREGNANCY: UNK)
     Route: 065

REACTIONS (1)
  - Foetal death [Fatal]
